FAERS Safety Report 26193859 (Version 1)
Quarter: 2025Q4

REPORT INFORMATION
  Report Type: Other
  Country: GB (occurrence: GB)
  Receive Date: 20251224
  Receipt Date: 20251224
  Transmission Date: 20260117
  Serious: Yes (Other)
  Sender: STRIDES
  Company Number: GB-SANDOZ-SDZ2025GB092541

PATIENT
  Sex: Male

DRUGS (2)
  1. PREDNISOLONE [Suspect]
     Active Substance: PREDNISOLONE
     Indication: Product used for unknown indication
     Dosage: 5MG TAB 28 ACC, TABLET
     Route: 065
  2. TACROLIMUS [Suspect]
     Active Substance: TACROLIMUS
     Indication: Product used for unknown indication
     Dosage: 1MG / 2MG  TWICE A DAY
     Route: 048

REACTIONS (1)
  - Neoplasm malignant [Recovered/Resolved]
